FAERS Safety Report 13374326 (Version 1)
Quarter: 2017Q1

REPORT INFORMATION
  Report Type: Spontaneous
  Country: US (occurrence: US)
  Receive Date: 20170327
  Receipt Date: 20170327
  Transmission Date: 20170429
  Serious: Yes (Other)
  Sender: FDA-Public Use
  Company Number: US-JNJFOC-20150614270

PATIENT
  Sex: Male

DRUGS (2)
  1. RISPERIDONE. [Suspect]
     Active Substance: RISPERIDONE
     Indication: PRODUCT USED FOR UNKNOWN INDICATION
     Route: 048
  2. RISPERDAL [Suspect]
     Active Substance: RISPERIDONE
     Indication: MENTAL DISORDER
     Dosage: 1-4 MG
     Route: 048
     Dates: start: 201208, end: 201309

REACTIONS (7)
  - Hyperglycaemia [Unknown]
  - Gynaecomastia [Unknown]
  - Galactorrhoea [Unknown]
  - Sleep apnoea syndrome [Unknown]
  - Obesity [Unknown]
  - Hyperprolactinaemia [Unknown]
  - Oedema [Unknown]

NARRATIVE: CASE EVENT DATE: 2012
